FAERS Safety Report 13989074 (Version 1)
Quarter: 2017Q3

REPORT INFORMATION
  Report Type: Spontaneous
  Country: US (occurrence: US)
  Receive Date: 20170919
  Receipt Date: 20170919
  Transmission Date: 20171128
  Serious: No
  Sender: FDA-Public Use
  Company Number: US-AMGEN-USASP2017140473

PATIENT
  Age: 7 Year
  Sex: Female

DRUGS (2)
  1. MTX [Concomitant]
     Active Substance: METHOTREXATE SODIUM
     Dosage: UNK UNK, QWK
     Route: 048
  2. ENBREL [Suspect]
     Active Substance: ETANERCEPT
     Indication: PSORIASIS
     Dosage: 12.5 MG, QWK ON TUESDAYS (TWO DOSES PER VIAL)
     Route: 065
     Dates: start: 2017

REACTIONS (2)
  - Headache [Unknown]
  - Viral infection [Unknown]

NARRATIVE: CASE EVENT DATE: 2017
